FAERS Safety Report 8198064-5 (Version None)
Quarter: 2012Q1

REPORT INFORMATION
  Report Type: 
  Country: None (occurrence: None)
  Receive Date: 20120309
  Receipt Date: 20120224
  Transmission Date: 20120608
  Serious: Yes (Hospitalization)
  Sender: FDA-Public Use
  Company Number: US-AMGEN-USASP2012010702

PATIENT
  Age: 75 Year
  Sex: Male

DRUGS (5)
  1. VITAMIN D [Concomitant]
  2. XGEVA [Suspect]
     Indication: METASTASES TO BONE
     Dosage: 120 MG, Q4WK
     Route: 058
     Dates: start: 20110621, end: 20111010
  3. CALCIUM [Concomitant]
     Indication: HYPOCALCAEMIA
  4. DOCETAXEL [Concomitant]
     Indication: PROSTATE CANCER
     Dosage: 75 MG/M2, UNK
     Route: 042
  5. CABAZITAXEL [Concomitant]
     Indication: PROSTATE CANCER
     Dosage: 20 MG/M2, UNK
     Route: 042

REACTIONS (3)
  - DYSPNOEA [None]
  - HYPOCALCAEMIA [None]
  - CHEST PAIN [None]
